FAERS Safety Report 9142733 (Version 1)
Quarter: 2013Q1

REPORT INFORMATION
  Report Type: Spontaneous
  Country: US (occurrence: US)
  Receive Date: 20130306
  Receipt Date: 20130306
  Transmission Date: 20140127
  Serious: Yes (Other)
  Sender: FDA-Public Use
  Company Number: US-BAYER-2013-027551

PATIENT
  Age: 31 Year
  Sex: Female

DRUGS (4)
  1. YAZ [Suspect]
     Dosage: UNK
     Route: 048
     Dates: start: 20090101, end: 20091228
  2. YASMIN [Suspect]
     Route: 048
  3. OCELLA [Suspect]
     Route: 048
  4. GIANVI [Suspect]
     Route: 048

REACTIONS (1)
  - Deep vein thrombosis [None]
